FAERS Safety Report 6267842-1 (Version None)
Quarter: 2009Q3

REPORT INFORMATION
  Report Type: 
  Country: None (occurrence: None)
  Receive Date: 20090709
  Receipt Date: 20090709
  Transmission Date: 20100115
  Serious: Yes (Other)
  Sender: FDA-Public Use
  Company Number: None

PATIENT
  Age: 36 Year
  Sex: Female
  Weight: 52.1637 kg

DRUGS (1)
  1. MEDROXYPROGESTERONE [Suspect]
     Indication: AMENORRHOEA
     Dosage: 10 MG  1 DAILY PO
     Route: 048
     Dates: start: 20090629, end: 20090630

REACTIONS (16)
  - ABDOMINAL DISTENSION [None]
  - CONDITION AGGRAVATED [None]
  - CRYING [None]
  - DIARRHOEA [None]
  - FATIGUE [None]
  - FEELING ABNORMAL [None]
  - FLATULENCE [None]
  - HYPERAESTHESIA [None]
  - INSOMNIA [None]
  - MOOD ALTERED [None]
  - NERVOUSNESS [None]
  - POOR QUALITY SLEEP [None]
  - PRURITUS [None]
  - PSYCHOMOTOR HYPERACTIVITY [None]
  - SLEEP DISORDER [None]
  - THERMAL BURN [None]
